FAERS Safety Report 8794609 (Version 3)
Quarter: 2012Q4

REPORT INFORMATION
  Report Type: 
  Country: JP (occurrence: JP)
  Receive Date: 20120917
  Receipt Date: 20121003
  Transmission Date: 20130627
  Serious: Yes (Death, Hospitalization)
  Sender: FDA-Public Use
  Company Number: JP-ABBOTT-12P-087-0979745-00

PATIENT
  Age: 70 Year
  Sex: Female

DRUGS (1)
  1. KLARICID [Suspect]
     Indication: BRONCHITIS
     Dosage: 400 mg daily

REACTIONS (2)
  - Bronchitis [Fatal]
  - Stevens-Johnson syndrome [Not Recovered/Not Resolved]
